FAERS Safety Report 9064983 (Version 1)
Quarter: 2013Q1

REPORT INFORMATION
  Report Type: Spontaneous
  Country: US (occurrence: US)
  Receive Date: 20130128
  Receipt Date: 20130128
  Transmission Date: 20140127
  Serious: Yes (Other)
  Sender: FDA-Public Use
  Company Number: US-RB-048825-13

PATIENT
  Age: 47 Year
  Sex: Male

DRUGS (2)
  1. MUCINEX MAXIMUM STRENGTH [Suspect]
     Indication: RESPIRATORY TRACT CONGESTION
     Route: 048
     Dates: start: 20130113
  2. METFORMIN [Concomitant]
     Indication: PRODUCT USED FOR UNKNOWN INDICATION

REACTIONS (5)
  - Vision blurred [Recovered/Resolved]
  - Eye pain [Recovered/Resolved]
  - Insomnia [Recovered/Resolved]
  - Wheezing [Recovered/Resolved]
  - Feeling jittery [Recovered/Resolved]
